FAERS Safety Report 7773203-6 (Version None)
Quarter: 2011Q3

REPORT INFORMATION
  Report Type: 
  Country: None (occurrence: None)
  Receive Date: 20110921
  Receipt Date: 20110921
  Transmission Date: 20111222
  Serious: No
  Sender: FDA-Public Use
  Company Number: None

PATIENT
  Age: 85 Year
  Sex: Male
  Weight: 126.8 kg

DRUGS (1)
  1. ALLOPURINOL [Suspect]
     Indication: GOUT
     Dosage: 150 MG EVERY DAY PO
     Route: 048
     Dates: start: 20110412, end: 20110721

REACTIONS (3)
  - RENAL FAILURE CHRONIC [None]
  - HYPERURICAEMIA [None]
  - LIP SWELLING [None]
